FAERS Safety Report 23061234 (Version 1)
Quarter: 2023Q4

REPORT INFORMATION
  Report Type: Spontaneous
  Country: US (occurrence: US)
  Receive Date: 20231013
  Receipt Date: 20231013
  Transmission Date: 20240110
  Serious: No
  Sender: FDA-Public Use
  Company Number: US-JNJFOC-20230966350

PATIENT
  Sex: Female

DRUGS (5)
  1. TYLENOL [Suspect]
     Active Substance: ACETAMINOPHEN
     Indication: Product used for unknown indication
     Route: 065
  2. ADVIL [Suspect]
     Active Substance: IBUPROFEN
     Indication: Product used for unknown indication
     Route: 065
  3. PREVNAR 20 [Concomitant]
     Active Substance: PNEUMOCOCCAL 20-VALENT CONJUGATE VACCINE
     Indication: Product used for unknown indication
     Dosage: LEFT ARM
     Route: 065
     Dates: start: 20230914
  4. LETROZOLE [Concomitant]
     Active Substance: LETROZOLE
     Indication: Breast cancer
     Dosage: ADDITIONAL INFORMATION FOR OTHER MEDICINES LETROZOLE: WAS ON IT, SINCE 2020, THIS TIME. PRIOR TO THA
     Route: 065
     Dates: start: 2020
  5. ESCITALOPRAM [Concomitant]
     Active Substance: ESCITALOPRAM OXALATE
     Indication: Generalised anxiety disorder
     Dosage: ADDITIONAL INFORMATION FOR OTHER MEDICINES?ESCITALOPRAM: TAKE GENERIC FOR LEXAPRO.
     Route: 065

REACTIONS (1)
  - Abdominal discomfort [Unknown]
